FAERS Safety Report 7167155-X (Version None)
Quarter: 2010Q4

REPORT INFORMATION
  Report Type: 
  Country: None (occurrence: None)
  Receive Date: 20101213
  Receipt Date: 20101213
  Transmission Date: 20110411
  Serious: Yes (Life-Threatening)
  Sender: FDA-Public Use
  Company Number: None

PATIENT
  Age: 71 Year
  Sex: Male
  Weight: 68.0396 kg

DRUGS (1)
  1. VIMOVO [Suspect]

REACTIONS (1)
  - HAEMATEMESIS [None]
